FAERS Safety Report 7556571-X (Version None)
Quarter: 2011Q2

REPORT INFORMATION
  Report Type: 
  Country: None (occurrence: None)
  Receive Date: 20110620
  Receipt Date: 20110608
  Transmission Date: 20111010
  Serious: Yes (Hospitalization, Other)
  Sender: FDA-Public Use
  Company Number: US-ELI_LILLY_AND_COMPANY-US201106003042

PATIENT
  Age: 90 Year
  Sex: Female

DRUGS (1)
  1. EVISTA [Suspect]
     Dosage: UNK

REACTIONS (3)
  - TRANSIENT ISCHAEMIC ATTACK [None]
  - DEEP VEIN THROMBOSIS [None]
  - FALL [None]
